FAERS Safety Report 7461896-2 (Version None)
Quarter: 2011Q2

REPORT INFORMATION
  Report Type: 
  Country: None (occurrence: None)
  Receive Date: 20110506
  Receipt Date: 20110422
  Transmission Date: 20111010
  Serious: Yes (Other)
  Sender: FDA-Public Use
  Company Number: US-BAYER-201037935NA

PATIENT
  Age: 31 Year
  Sex: Female
  Weight: 140.14 kg

DRUGS (10)
  1. DROSPIRENONE AND ETHINYL ESTRADIOL [Suspect]
     Indication: ACNE
  2. ADVIL LIQUI-GELS [Concomitant]
  3. SYNTHROID [Concomitant]
  4. YAZ [Suspect]
     Indication: ACNE
  5. LASIX [Concomitant]
  6. IBUPROFEN [Concomitant]
  7. PHENERGAN HCL [Concomitant]
     Indication: CHEST PAIN
     Dosage: UNK
     Dates: start: 20020701
  8. YASMIN [Suspect]
     Indication: ACNE
     Dosage: UNK
  9. LEVOXYL [Concomitant]
  10. DEMEROL [Concomitant]
     Indication: CHEST PAIN
     Dosage: UNK
     Dates: start: 20020701

REACTIONS (6)
  - CHOLECYSTITIS INFECTIVE [None]
  - GALLBLADDER DISORDER [None]
  - THROMBOSIS [None]
  - PULMONARY EMBOLISM [None]
  - CHOLECYSTITIS ACUTE [None]
  - CHOLELITHIASIS [None]
